FAERS Safety Report 22109994 (Version 1)
Quarter: 2023Q1

REPORT INFORMATION
  Report Type: Spontaneous
  Country: US (occurrence: None)
  Receive Date: 20230317
  Receipt Date: 20230317
  Transmission Date: 20230418
  Serious: Yes (Hospitalization)
  Sender: FDA-Public Use
  Company Number: None

PATIENT
  Age: 65 Year
  Sex: Male

DRUGS (10)
  1. ESBRIET [Suspect]
     Active Substance: PIRFENIDONE
     Indication: Idiopathic pulmonary fibrosis
     Route: 048
     Dates: start: 20210408
  2. AMOXICILLIN CAP [Concomitant]
  3. AUGMENTIN TAB [Concomitant]
  4. AZITHROMYCIN TAB [Concomitant]
  5. CLOPIDOGREL TAB [Concomitant]
  6. ISOSORB MONO TAB [Concomitant]
  7. LOSARTAN POT TAB [Concomitant]
  8. NITROGLYCERI SUB [Concomitant]
  9. PREDNISONE [Concomitant]
     Active Substance: PREDNISONE
  10. SYMBICORT AER [Concomitant]

REACTIONS (1)
  - Lung transplant [None]

NARRATIVE: CASE EVENT DATE: 20230303
